FAERS Safety Report 24752678 (Version 1)
Quarter: 2024Q4

REPORT INFORMATION
  Report Type: Spontaneous
  Country: US (occurrence: US)
  Receive Date: 20241219
  Receipt Date: 20241219
  Transmission Date: 20250114
  Serious: No
  Sender: PACIRA
  Company Number: US-ORG100016242-2024000426

PATIENT

DRUGS (2)
  1. EXPAREL [Suspect]
     Active Substance: BUPIVACAINE
     Indication: Nerve block
     Dosage: 2 HOURS PRIOR TO THE INJECTION OF RECK
     Route: 050
  2. CLONIDINE\EPINEPHRINE\KETOROLAC\ROPIVACAINE [Suspect]
     Active Substance: CLONIDINE\EPINEPHRINE\KETOROLAC\ROPIVACAINE
     Indication: Postoperative care
     Dosage: 50 ML FILL, 50 ML SYRINGE
     Route: 050

REACTIONS (1)
  - Labelled drug-drug interaction medication error [Unknown]
